FAERS Safety Report 8789929 (Version 1)
Quarter: 2012Q4

REPORT INFORMATION
  Report Type: 
  Country: US (occurrence: US)
  Receive Date: 20120917
  Receipt Date: 20120917
  Transmission Date: 20130627
  Serious: Yes (Other)
  Sender: FDA-Public Use
  Company Number: US-ELI_LILLY_AND_COMPANY-US201209002860

PATIENT
  Sex: Male

DRUGS (3)
  1. CIALIS [Suspect]
     Indication: ERECTILE DYSFUNCTION
     Dosage: 20 mg, UNK
  2. CIALIS [Suspect]
     Dosage: 10 mg, UNK
  3. CIALIS [Suspect]
     Dosage: 5 mg, qd

REACTIONS (2)
  - Prostate cancer [Unknown]
  - Peyronie^s disease [Unknown]
